FAERS Safety Report 5836560-3 (Version None)
Quarter: 2008Q3

REPORT INFORMATION
  Report Type: 
  Country: None (occurrence: None)
  Receive Date: 20080807
  Receipt Date: 20080728
  Transmission Date: 20090109
  Serious: Yes (Hospitalization)
  Sender: FDA-Public Use
  Company Number: GB-TEVA-175147ISR

PATIENT
  Age: 7 Year

DRUGS (5)
  1. PREDNISOLONE [Suspect]
  2. CYCLOSPORINE [Suspect]
  3. MYCOPHENOLATE MOFETIL [Suspect]
  4. IMMUNE GLOBULIN INTRAVENOUS (HUMAN) [Concomitant]
  5. RITUXIMAB [Concomitant]

REACTIONS (1)
  - PULMONARY HYPERTENSION [None]
